FAERS Safety Report 11267153 (Version 1)
Quarter: 2015Q3

REPORT INFORMATION
  Report Type: Spontaneous
  Country: TR (occurrence: TR)
  Receive Date: 20150713
  Receipt Date: 20150713
  Transmission Date: 20151125
  Serious: Yes (Other)
  Sender: FDA-Public Use
  Company Number: PHHY2015TR080899

PATIENT
  Age: 44 Year
  Sex: Male

DRUGS (1)
  1. PREDNISONE. [Suspect]
     Active Substance: PREDNISONE
     Indication: VIITH NERVE PARALYSIS
     Dosage: 60 MG, QD
     Route: 065

REACTIONS (4)
  - Vision blurred [Unknown]
  - Fatigue [Unknown]
  - Coronary artery disease [Unknown]
  - Chest pain [Unknown]
